FAERS Safety Report 15684244 (Version 1)
Quarter: 2018Q4

REPORT INFORMATION
  Report Type: Other
  Country: GB (occurrence: GB)
  Receive Date: 20181204
  Receipt Date: 20181204
  Transmission Date: 20190205
  Serious: Yes (Other)
  Sender: FDA-Public Use
  Company Number: GB-CELLTRION INC.-2018GB024119

PATIENT

DRUGS (11)
  1. REMSIMA [Suspect]
     Active Substance: INFLIXIMAB
     Dosage: UNK
     Route: 065
  2. REMSIMA [Suspect]
     Active Substance: INFLIXIMAB
     Dosage: UNK
     Route: 065
  3. REMSIMA [Suspect]
     Active Substance: INFLIXIMAB
     Dosage: UNK, 11 TH INFUSION
     Route: 065
  4. REMSIMA [Suspect]
     Active Substance: INFLIXIMAB
     Dosage: UNK
     Route: 065
  5. REMSIMA [Suspect]
     Active Substance: INFLIXIMAB
     Indication: PRODUCT USED FOR UNKNOWN INDICATION
     Dosage: UNK
     Route: 065
  6. REMSIMA [Suspect]
     Active Substance: INFLIXIMAB
     Dosage: UNK
     Route: 065
  7. REMSIMA [Suspect]
     Active Substance: INFLIXIMAB
     Dosage: UNK
     Route: 065
  8. REMSIMA [Suspect]
     Active Substance: INFLIXIMAB
     Dosage: UNK
     Route: 065
  9. REMSIMA [Suspect]
     Active Substance: INFLIXIMAB
     Dosage: UNK
     Route: 065
  10. REMSIMA [Suspect]
     Active Substance: INFLIXIMAB
     Dosage: UNK
     Route: 065
  11. REMSIMA [Suspect]
     Active Substance: INFLIXIMAB
     Dosage: UNK
     Route: 065

REACTIONS (3)
  - Urticaria [Recovered/Resolved]
  - Throat tightness [Recovered/Resolved]
  - Eye swelling [Recovered/Resolved]
